FAERS Safety Report 13678870 (Version 17)
Quarter: 2023Q2

REPORT INFORMATION
  Report Type: Spontaneous
  Country: US (occurrence: US)
  Receive Date: 20170622
  Receipt Date: 20230410
  Transmission Date: 20230721
  Serious: Yes (Life-Threatening, Other)
  Sender: FDA-Public Use
  Company Number: US-PFIZER INC-2017268258

PATIENT
  Age: 3 Decade
  Sex: Female
  Weight: 86.18 kg

DRUGS (9)
  1. EPINEPHRINE [Suspect]
     Active Substance: EPINEPHRINE
     Dosage: UNK
     Route: 065
     Dates: start: 1960
  2. EPINEPHRINE [Suspect]
     Active Substance: EPINEPHRINE
     Dosage: 1 DROP IN EYE
     Route: 047
  3. EPINEPHRINE [Suspect]
     Active Substance: EPINEPHRINE
     Dosage: UNK
     Route: 061
  4. EPINEPHRINE [Suspect]
     Active Substance: EPINEPHRINE
     Dosage: 1 DROP
     Route: 065
     Dates: start: 1960, end: 1960
  5. NORVASC [Concomitant]
     Active Substance: AMLODIPINE BESYLATE
     Dosage: UNK
  6. LIPITOR [Concomitant]
     Active Substance: ATORVASTATIN CALCIUM
     Dosage: UNK
  7. XALATAN [Concomitant]
     Active Substance: LATANOPROST
     Dosage: UNK
  8. CLINDAMYCIN HYDROCHLORIDE [Concomitant]
     Active Substance: CLINDAMYCIN HYDROCHLORIDE
     Dosage: UNK
  9. NITROSTAT [Concomitant]
     Active Substance: NITROGLYCERIN
     Dosage: UNK

REACTIONS (16)
  - Anaphylactic reaction [Unknown]
  - Laryngospasm [Unknown]
  - Drug hypersensitivity [Unknown]
  - Loss of consciousness [Unknown]
  - Muscle spasms [Unknown]
  - Fall [Unknown]
  - Concussion [Unknown]
  - Rib fracture [Unknown]
  - Spinal fracture [Unknown]
  - Off label use [Unknown]
  - Vasospasm [Unknown]
  - Peripheral swelling [Unknown]
  - Gait inability [Unknown]
  - Hypoacusis [Unknown]
  - Eye pain [Unknown]
  - Ocular discomfort [Unknown]

NARRATIVE: CASE EVENT DATE: 19600101
